FAERS Safety Report 7403458-9 (Version None)
Quarter: 2011Q2

REPORT INFORMATION
  Report Type: 
  Country: None (occurrence: None)
  Receive Date: 20110408
  Receipt Date: 20110401
  Transmission Date: 20111010
  Serious: Yes (Hospitalization)
  Sender: FDA-Public Use
  Company Number: B0707280A

PATIENT
  Sex: Female

DRUGS (10)
  1. LAMICTAL [Suspect]
     Dosage: 150MG PER DAY
     Route: 048
     Dates: start: 20110308, end: 20110314
  2. LAMICTAL [Suspect]
     Indication: DEPRESSION
     Dosage: 25MG TWICE PER DAY
     Route: 048
     Dates: start: 20110207, end: 20110220
  3. LOBU [Concomitant]
     Indication: ABDOMINAL PAIN
     Dosage: 120MG PER DAY
     Route: 048
  4. LAMICTAL [Suspect]
     Dosage: 100MG PER DAY
     Route: 048
     Dates: start: 20110208, end: 20110307
  5. LAMICTAL [Suspect]
     Dosage: 200MG PER DAY
     Route: 048
     Dates: start: 20110315, end: 20110317
  6. DEPAKENE [Suspect]
     Indication: DEPRESSION
     Dosage: 400MG PER DAY
     Route: 048
     Dates: end: 20110322
  7. BENZALIN [Concomitant]
     Indication: INSOMNIA
     Dosage: 10MG PER DAY
     Route: 048
  8. LENDORMIN [Concomitant]
     Indication: INSOMNIA
     Dosage: .25MG PER DAY
     Route: 048
  9. SEROQUEL [Suspect]
     Indication: DEPRESSION
     Dosage: 200MG PER DAY
     Route: 048
  10. ROHYPNOL [Concomitant]
     Indication: INSOMNIA
     Dosage: 2MG PER DAY
     Route: 048

REACTIONS (16)
  - LIVER DISORDER [None]
  - WHITE BLOOD CELL COUNT DECREASED [None]
  - C-REACTIVE PROTEIN INCREASED [None]
  - GAMMA-GLUTAMYLTRANSFERASE INCREASED [None]
  - BLOOD LACTATE DEHYDROGENASE INCREASED [None]
  - ALANINE AMINOTRANSFERASE INCREASED [None]
  - BLOOD AMYLASE ABNORMAL [None]
  - ASPARTATE AMINOTRANSFERASE INCREASED [None]
  - RED BLOOD CELL COUNT DECREASED [None]
  - BLOOD ALBUMIN DECREASED [None]
  - SKIN DISORDER [None]
  - BLOOD ALKALINE PHOSPHATASE INCREASED [None]
  - PANCYTOPENIA [None]
  - SENSATION OF HEAVINESS [None]
  - MALAISE [None]
  - NEUTROPHIL PERCENTAGE DECREASED [None]
